FAERS Safety Report 9057250 (Version 3)
Quarter: 2013Q2

REPORT INFORMATION
  Report Type: Report from Study
  Country: JP (occurrence: JP)
  Receive Date: 20130131
  Receipt Date: 20130524
  Transmission Date: 20140414
  Serious: No
  Sender: FDA-Public Use
  Company Number: JP-GLAXOSMITHKLINE-B0829429A

PATIENT
  Age: 58 Year
  Sex: Male

DRUGS (12)
  1. REVOLADE [Suspect]
     Indication: IDIOPATHIC THROMBOCYTOPENIC PURPURA
     Route: 048
     Dates: start: 20120112, end: 20120717
  2. REVOLADE [Suspect]
     Indication: IDIOPATHIC THROMBOCYTOPENIC PURPURA
     Dosage: 12.5MG PER DAY
     Route: 048
     Dates: start: 20120801, end: 20121026
  3. REVOLADE [Suspect]
     Indication: IDIOPATHIC THROMBOCYTOPENIC PURPURA
     Dosage: 12.5MG ALTERNATE DAYS
     Route: 048
     Dates: start: 20121027, end: 20121109
  4. REVOLADE [Suspect]
     Indication: IDIOPATHIC THROMBOCYTOPENIC PURPURA
     Dosage: 12.5MG FOUR TIMES PER WEEK
     Route: 048
     Dates: start: 20121110, end: 20121207
  5. REVOLADE [Suspect]
     Indication: IDIOPATHIC THROMBOCYTOPENIC PURPURA
     Dosage: 12.5MG FIVE TIMES PER WEEK
     Route: 048
     Dates: start: 20121208, end: 20130111
  6. REVOLADE [Suspect]
     Indication: IDIOPATHIC THROMBOCYTOPENIC PURPURA
     Route: 048
     Dates: start: 20130112
  7. THYRADIN [Concomitant]
     Route: 048
  8. LEVOTHYROXINE NA [Concomitant]
     Route: 048
     Dates: start: 20000717
  9. LEVOTHYROXINE NA [Concomitant]
     Route: 048
     Dates: start: 20120825
  10. PRIMOBOLAN [Concomitant]
     Indication: IDIOPATHIC THROMBOCYTOPENIC PURPURA
     Route: 048
     Dates: start: 20110908, end: 20120125
  11. PRIMOBOLAN [Concomitant]
     Indication: IDIOPATHIC THROMBOCYTOPENIC PURPURA
     Route: 048
     Dates: start: 20120126, end: 20120307
  12. PRIMOBOLAN [Concomitant]
     Indication: IDIOPATHIC THROMBOCYTOPENIC PURPURA
     Route: 048
     Dates: start: 20120308, end: 20120405

REACTIONS (2)
  - Hepatic function abnormal [Recovering/Resolving]
  - Palpitations [Recovering/Resolving]
